FAERS Safety Report 8133792-9 (Version None)
Quarter: 2012Q1

REPORT INFORMATION
  Report Type: 
  Country: None (occurrence: None)
  Receive Date: 20120213
  Receipt Date: 20120213
  Transmission Date: 20120608
  Serious: No
  Sender: FDA-Public Use
  Company Number: None

PATIENT
  Age: 68 Year
  Sex: Male

DRUGS (1)
  1. TERBINAFINE HCL [Suspect]
     Dosage: 1 TABLET
     Route: 048

REACTIONS (1)
  - VISUAL FIELD DEFECT [None]
